FAERS Safety Report 7587008-2 (Version None)
Quarter: 2011Q3

REPORT INFORMATION
  Report Type: 
  Country: None (occurrence: None)
  Receive Date: 20110701
  Receipt Date: 20110616
  Transmission Date: 20111222
  Serious: Yes (Hospitalization, Other)
  Sender: FDA-Public Use
  Company Number: PHHY2011CA54047

PATIENT
  Sex: Female
  Weight: 48 kg

DRUGS (3)
  1. CALCIUM CARBONATE [Concomitant]
  2. ZOLEDRONIC ACID [Suspect]
     Dosage: 5 MG,
     Route: 042
  3. VITAMIN D [Concomitant]

REACTIONS (1)
  - LOWER LIMB FRACTURE [None]
